FAERS Safety Report 8916499 (Version 1)
Quarter: 2012Q4

REPORT INFORMATION
  Report Type: Report from Study
  Country: DE (occurrence: DE)
  Receive Date: 20121120
  Receipt Date: 20121120
  Transmission Date: 20130627
  Serious: Yes (Death)
  Sender: FDA-Public Use
  Company Number: DE-ROCHE-1101341

PATIENT
  Age: 85 Year
  Sex: Male

DRUGS (13)
  1. RITUXIMAB [Suspect]
     Indication: CHRONIC LYMPHOCYTIC LEUKAEMIA
     Dosage: d1/28d
     Route: 042
     Dates: start: 20110427
  2. CHLORAMBUCIL [Suspect]
     Indication: CHRONIC LYMPHOCYTIC LEUKAEMIA
     Dosage: d1+d15/28d, LAST DOSE PRIOR TO EVENT WAS ON 12/OCT/2011
     Route: 048
  3. AMLODIPIN [Concomitant]
     Route: 065
     Dates: start: 2011
  4. METFORMIN [Concomitant]
     Route: 065
     Dates: start: 20110113
  5. ASS [Concomitant]
     Route: 065
     Dates: start: 20100630
  6. SIMVASTATIN [Concomitant]
     Route: 065
     Dates: start: 20100630
  7. BISOPROLOL [Concomitant]
     Route: 065
     Dates: start: 20080421
  8. FUROSEMIDE [Concomitant]
     Route: 065
     Dates: start: 201007
  9. DELIX PLUS [Concomitant]
     Dosage: 5/175 mg
     Route: 065
     Dates: start: 201103
  10. ISDN RETARD [Concomitant]
     Route: 065
     Dates: start: 201103
  11. MOLSIDOMIN [Concomitant]
     Route: 065
     Dates: start: 201103
  12. RANEXA [Concomitant]
     Route: 065
     Dates: start: 201103
  13. INSULIN [Concomitant]
     Route: 065
     Dates: start: 201103

REACTIONS (1)
  - Death [Fatal]
